FAERS Safety Report 5003257-1 (Version None)
Quarter: 2006Q2

REPORT INFORMATION
  Report Type: 
  Country: None (occurrence: None)
  Receive Date: 20060516
  Receipt Date: 20060509
  Transmission Date: 20061013
  Serious: Yes (Other)
  Sender: FDA-Public Use
  Company Number: US-AVENTIS-200614193US

PATIENT
  Sex: Female
  Weight: 104.5 kg

DRUGS (6)
  1. AMARYL [Suspect]
     Route: 048
     Dates: end: 20051001
  2. AMARYL [Suspect]
     Route: 048
  3. AMARYL [Suspect]
     Route: 048
     Dates: start: 20051001
  4. DRUG USED IN DIABETES [Suspect]
     Indication: DIABETES MELLITUS NON-INSULIN-DEPENDENT
     Route: 058
     Dates: start: 20051001, end: 20051001
  5. DRUG USED IN DIABETES [Suspect]
     Route: 058
     Dates: start: 20051001
  6. LANTUS [Concomitant]
     Dosage: DOSE: UNKNOWN
     Dates: start: 20060314

REACTIONS (5)
  - INCREASED APPETITE [None]
  - INJECTION SITE URTICARIA [None]
  - MENISCUS LESION [None]
  - NAUSEA [None]
  - WEIGHT LOSS POOR [None]
